FAERS Safety Report 6100009-6 (Version None)
Quarter: 2009Q1

REPORT INFORMATION
  Report Type: 
  Country: None (occurrence: None)
  Receive Date: 20090303
  Receipt Date: 20090227
  Transmission Date: 20090719
  Serious: Yes (Death)
  Sender: FDA-Public Use
  Company Number: A0770981A

PATIENT
  Sex: Male

DRUGS (4)
  1. SERETIDE [Suspect]
     Indication: CHRONIC OBSTRUCTIVE PULMONARY DISEASE
     Dosage: 1PUFF TWICE PER DAY
     Route: 055
  2. SPIRIVA [Concomitant]
     Dates: start: 20070101, end: 20090206
  3. ZANIDIP [Concomitant]
     Dosage: 20MG PER DAY
     Dates: start: 20070101, end: 20090206
  4. COMBIVENT [Concomitant]

REACTIONS (3)
  - DEPRESSION [None]
  - EMPHYSEMA [None]
  - NEOPLASM PROSTATE [None]
